FAERS Safety Report 9940112 (Version 1)
Quarter: 2014Q1

REPORT INFORMATION
  Report Type: Report from Study
  Country: US (occurrence: US)
  Receive Date: 20140303
  Receipt Date: 20140303
  Transmission Date: 20141002
  Serious: No
  Sender: FDA-Public Use
  Company Number: US-ABBVIE-13P-163-1033282-00

PATIENT
  Age: 29 Year
  Sex: Female

DRUGS (6)
  1. HUMIRA [Suspect]
     Indication: PSORIASIS
     Dates: start: 20121201
  2. UNKNOWN HEADACHE MEDICINE [Concomitant]
     Indication: HEADACHE
  3. TACLONEX [Concomitant]
     Indication: PSORIASIS
  4. CLOBETASOL [Concomitant]
  5. MELOXICAM [Concomitant]
  6. FIORICET [Concomitant]

REACTIONS (4)
  - Device malfunction [Recovered/Resolved]
  - Drug dose omission [Recovered/Resolved]
  - Wrong technique in drug usage process [Unknown]
  - Drug dose omission [Unknown]
